FAERS Safety Report 25739948 (Version 3)
Quarter: 2025Q4

REPORT INFORMATION
  Report Type: Spontaneous
  Country: US (occurrence: US)
  Receive Date: 20250829
  Receipt Date: 20251003
  Transmission Date: 20260117
  Serious: No
  Sender: LUPIN
  Company Number: US-LUPIN PHARMACEUTICALS INC.-2025-07528

PATIENT

DRUGS (1)
  1. PREDNISOLONE ACETATE [Suspect]
     Active Substance: PREDNISOLONE ACETATE
     Indication: Eye disorder
     Dosage: 1 DROP IN ONE EYE, QID

REACTIONS (5)
  - Circumstance or information capable of leading to medication error [Unknown]
  - Product leakage [Unknown]
  - Device difficult to use [Unknown]
  - Product packaging quantity issue [Unknown]
  - No adverse event [Unknown]
